FAERS Safety Report 16283256 (Version 4)
Quarter: 2023Q1

REPORT INFORMATION
  Report Type: Spontaneous
  Country: US (occurrence: None)
  Receive Date: 20190507
  Receipt Date: 20230227
  Transmission Date: 20230418
  Serious: Yes (Other)
  Sender: FDA-Public Use
  Company Number: 2019SE11211

PATIENT
  Age: 27033 Day
  Sex: Male
  Weight: 81.6 kg

DRUGS (27)
  1. PRILOSEC [Suspect]
     Active Substance: OMEPRAZOLE MAGNESIUM
     Route: 048
  2. DEXILANT [Suspect]
     Active Substance: DEXLANSOPRAZOLE
     Route: 065
  3. HYDROCHLOROTHIAZIDE [Concomitant]
     Active Substance: HYDROCHLOROTHIAZIDE
  4. METOPROLOL TARTRATE [Concomitant]
     Active Substance: METOPROLOL TARTRATE
  5. LISINOPRIL [Concomitant]
     Active Substance: LISINOPRIL
  6. HYDROCODONE [Concomitant]
     Active Substance: HYDROCODONE
  7. BUSPIRONE [Concomitant]
     Active Substance: BUSPIRONE HYDROCHLORIDE
  8. SIMVASTATIN [Concomitant]
     Active Substance: SIMVASTATIN
  9. TEMAZEPAM [Concomitant]
     Active Substance: TEMAZEPAM
  10. LORAZEPAM [Concomitant]
     Active Substance: LORAZEPAM
  11. LEXAPRO [Concomitant]
     Active Substance: ESCITALOPRAM OXALATE
  12. ASPIRIN [Concomitant]
     Active Substance: ASPIRIN
  13. VITAMINS [Concomitant]
     Active Substance: VITAMINS
  14. GLUCOSAMINE [Concomitant]
     Active Substance: GLUCOSAMINE
  15. SEVELAMER CARBONATE [Concomitant]
     Active Substance: SEVELAMER CARBONATE
  16. HYDRALAZINE [Concomitant]
     Active Substance: HYDRALAZINE HYDROCHLORIDE
  17. GABAPENTIN [Concomitant]
     Active Substance: GABAPENTIN
  18. ATORVASTATIN [Concomitant]
     Active Substance: ATORVASTATIN
  19. CLOPIDOGREL [Concomitant]
     Active Substance: CLOPIDOGREL BISULFATE
  20. COLCHICINE [Concomitant]
     Active Substance: COLCHICINE
  21. DOCUSATE [Concomitant]
     Active Substance: DOCUSATE
  22. NITROGLYCERIN [Concomitant]
     Active Substance: NITROGLYCERIN
  23. TAMSULOSIN [Concomitant]
     Active Substance: TAMSULOSIN
  24. DILTIAZEM [Concomitant]
     Active Substance: DILTIAZEM
  25. AMLODIPINE [Concomitant]
     Active Substance: AMLODIPINE BESYLATE
  26. ALPRAZOLAM [Concomitant]
     Active Substance: ALPRAZOLAM
  27. VENLAFAXINE [Concomitant]
     Active Substance: VENLAFAXINE HYDROCHLORIDE

REACTIONS (6)
  - Chronic kidney disease [Unknown]
  - End stage renal disease [Unknown]
  - Renal failure [Unknown]
  - Renal injury [Unknown]
  - Tubulointerstitial nephritis [Unknown]
  - Rebound acid hypersecretion [Unknown]

NARRATIVE: CASE EVENT DATE: 20150906
